FAERS Safety Report 25526627 (Version 2)
Quarter: 2025Q3

REPORT INFORMATION
  Report Type: Spontaneous
  Country: CN (occurrence: CN)
  Receive Date: 20250707
  Receipt Date: 20250709
  Transmission Date: 20251020
  Serious: Yes (Other)
  Sender: PFIZER
  Company Number: CN-PFIZER INC-202500133411

PATIENT
  Age: 66 Year
  Sex: Female

DRUGS (2)
  1. LORLATINIB [Suspect]
     Active Substance: LORLATINIB
     Indication: Lung neoplasm malignant
     Dosage: 100 MG, 1X/DAY
     Route: 048
     Dates: start: 202502
  2. LORLATINIB [Suspect]
     Active Substance: LORLATINIB
     Indication: Metastases to central nervous system
     Dosage: 75 MG, 1X/DAY
     Route: 048
     Dates: start: 20250623, end: 20250627

REACTIONS (7)
  - Hallucination [Not Recovered/Not Resolved]
  - Disorganised speech [Recovering/Resolving]
  - Gait disturbance [Not Recovered/Not Resolved]
  - Dysarthria [Not Recovered/Not Resolved]
  - Insomnia [Unknown]
  - Muscular weakness [Recovering/Resolving]
  - Somnolence [Unknown]

NARRATIVE: CASE EVENT DATE: 20250101
